FAERS Safety Report 10146765 (Version 2)
Quarter: 2014Q2

REPORT INFORMATION
  Report Type: Spontaneous
  Country: US (occurrence: US)
  Receive Date: 20140501
  Receipt Date: 20140509
  Transmission Date: 20141212
  Serious: Yes (Hospitalization)
  Sender: FDA-Public Use
  Company Number: US-LUNDBECK-DKLU1099567

PATIENT
  Sex: Female

DRUGS (1)
  1. SABRIL     (TABLET) [Suspect]
     Indication: INFANTILE SPASMS
     Route: 048
     Dates: start: 20110419

REACTIONS (2)
  - Benign neoplasm [Unknown]
  - Ear tube insertion [Unknown]
